FAERS Safety Report 11603570 (Version 1)
Quarter: 2015Q4

REPORT INFORMATION
  Report Type: Spontaneous
  Country: US (occurrence: US)
  Receive Date: 20151007
  Receipt Date: 20151007
  Transmission Date: 20160304
  Serious: No
  Sender: FDA-Public Use
  Company Number: US-009507513-1509USA013991

PATIENT
  Age: 23 Year
  Sex: Female
  Weight: 104.31 kg

DRUGS (2)
  1. NUVARING [Suspect]
     Active Substance: ETHINYL ESTRADIOL\ETONOGESTREL
     Indication: MUSCLE SPASMS
     Dosage: UNK,3 WEEKS IN 1 WEEK OUT
     Route: 067
     Dates: start: 201409
  2. NUVARING [Suspect]
     Active Substance: ETHINYL ESTRADIOL\ETONOGESTREL
     Indication: CONTRACEPTION

REACTIONS (4)
  - Pain [Not Recovered/Not Resolved]
  - Drug administration error [Unknown]
  - Discomfort [Not Recovered/Not Resolved]
  - Product quality issue [Unknown]

NARRATIVE: CASE EVENT DATE: 201409
